FAERS Safety Report 21585264 (Version 1)
Quarter: 2022Q4

REPORT INFORMATION
  Report Type: Spontaneous
  Country: US (occurrence: US)
  Receive Date: 20221111
  Receipt Date: 20221111
  Transmission Date: 20230113
  Serious: No
  Sender: FDA-Public Use
  Company Number: US-NOVOPROD-870606

PATIENT
  Sex: Female

DRUGS (1)
  1. TRESIBA [Suspect]
     Active Substance: INSULIN DEGLUDEC
     Indication: Product used for unknown indication
     Dosage: 26 UNITS
     Route: 058
     Dates: start: 202110

REACTIONS (3)
  - Vision blurred [Recovered/Resolved]
  - Chest pain [Unknown]
  - Dose calculation error [Unknown]

NARRATIVE: CASE EVENT DATE: 20211001
